FAERS Safety Report 15636735 (Version 1)
Quarter: 2018Q4

REPORT INFORMATION
  Report Type: Spontaneous
  Country: US (occurrence: US)
  Receive Date: 20181120
  Receipt Date: 20181120
  Transmission Date: 20190205
  Serious: No
  Sender: FDA-Public Use
  Company Number: US-GLAXOSMITHKLINE-US2018GSK194997

PATIENT
  Sex: Female

DRUGS (1)
  1. PROPAFENONE HYDROCHLORIDE MODIFIED-RELEASE CAPSULE, HARD [Suspect]
     Active Substance: PROPAFENONE HYDROCHLORIDE
     Indication: PRODUCT USED FOR UNKNOWN INDICATION
     Dosage: 325 MG, UNK

REACTIONS (2)
  - Product complaint [Unknown]
  - Intercepted product administration error [Unknown]

NARRATIVE: CASE EVENT DATE: 20181022
